FAERS Safety Report 6096490-1 (Version None)
Quarter: 2009Q1

REPORT INFORMATION
  Report Type: 
  Country: None (occurrence: None)
  Receive Date: 20090227
  Receipt Date: 20090216
  Transmission Date: 20090719
  Serious: Yes (Hospitalization, Other)
  Sender: FDA-Public Use
  Company Number: US-ELI_LILLY_AND_COMPANY-US200811003846

PATIENT
  Sex: Female
  Weight: 83.9 kg

DRUGS (6)
  1. FORTEO [Suspect]
     Indication: OSTEOPOROSIS POSTMENOPAUSAL
     Dosage: 20 UG, DAILY (1/D)
     Dates: start: 20080701
  2. METFORMIN [Concomitant]
     Indication: DIABETES MELLITUS
     Dates: start: 20050101
  3. CALCITONIN [Concomitant]
     Indication: OSTEOPOROSIS
  4. VITAMIN D [Concomitant]
     Indication: SUPPLEMENTATION THERAPY
     Dosage: 50000 U, UNK
  5. CALCIUM WITH VITAMIN D /00944201/ [Concomitant]
     Indication: SUPPLEMENTATION THERAPY
     Dosage: 600 MG, 2/D
  6. VITAMINS NOS [Concomitant]
     Indication: SUPPLEMENTATION THERAPY

REACTIONS (6)
  - FEMUR FRACTURE [None]
  - GAIT DISTURBANCE [None]
  - HAEMORRHAGE [None]
  - HEART RATE INCREASED [None]
  - LOSS OF CONSCIOUSNESS [None]
  - PULMONARY EMBOLISM [None]
